FAERS Safety Report 18877566 (Version 3)
Quarter: 2024Q2

REPORT INFORMATION
  Report Type: Spontaneous
  Country: DE (occurrence: DE)
  Receive Date: 20210211
  Receipt Date: 20240520
  Transmission Date: 20240715
  Serious: Yes (Death, Congenital Anomaly, Other)
  Sender: FDA-Public Use
  Company Number: DE-SERVIER-S21001204

PATIENT
  Age: 1 Day
  Sex: Female

DRUGS (3)
  1. IVABRADINE [Suspect]
     Active Substance: IVABRADINE
     Indication: Foetal exposure timing unspecified
     Dosage: UNK
     Route: 064
  2. NAPROXEN [Suspect]
     Active Substance: NAPROXEN
     Indication: Foetal exposure timing unspecified
     Dosage: UNK
     Route: 064
  3. METAMIZOLE [Suspect]
     Active Substance: METAMIZOLE
     Indication: Foetal exposure timing unspecified
     Dosage: UNK
     Route: 064

REACTIONS (4)
  - Tracheal atresia [Fatal]
  - Death neonatal [Fatal]
  - Large for dates baby [Fatal]
  - Foetal exposure during pregnancy [Fatal]

NARRATIVE: CASE EVENT DATE: 20190101
